FAERS Safety Report 6623557-9 (Version None)
Quarter: 2010Q1

REPORT INFORMATION
  Report Type: 
  Country: None (occurrence: None)
  Receive Date: 20100310
  Receipt Date: 20100303
  Transmission Date: 20100710
  Serious: Yes (Other)
  Sender: FDA-Public Use
  Company Number: JP-PFIZER INC-2010028454

PATIENT
  Sex: Male

DRUGS (1)
  1. LIPITOR [Suspect]
     Dosage: UNK
     Dates: start: 19980101

REACTIONS (7)
  - BLOOD CREATINE PHOSPHOKINASE INCREASED [None]
  - BLOOD CREATININE DECREASED [None]
  - BLOOD URIC ACID INCREASED [None]
  - BLOOD URINE PRESENT [None]
  - HYPERTENSION [None]
  - PROTEIN URINE PRESENT [None]
  - RHABDOMYOLYSIS [None]
